FAERS Safety Report 6041970-8 (Version None)
Quarter: 2009Q1

REPORT INFORMATION
  Report Type: 
  Country: None (occurrence: None)
  Receive Date: 20090116
  Receipt Date: 20081205
  Transmission Date: 20090719
  Serious: Yes (Hospitalization, Disabling, Other)
  Sender: FDA-Public Use
  Company Number: US-PFIZER INC-2008056003

PATIENT
  Sex: Female

DRUGS (22)
  1. LYRICA [Suspect]
     Indication: NEUROPATHY PERIPHERAL
     Dosage: 150 MG, 2X/DAY
     Route: 048
     Dates: start: 20060201
  2. ALL OTHER THERAPEUTIC PRODUCTS [Concomitant]
  3. INSULIN [Concomitant]
  4. SIMVASTATIN [Concomitant]
  5. BENICAR [Concomitant]
  6. GLIPIZIDE [Concomitant]
  7. COREG [Concomitant]
  8. LEVOXYL [Concomitant]
  9. PRILOSEC [Concomitant]
  10. ACETYLSALICYLIC ACID SRT [Concomitant]
  11. PLAVIX [Concomitant]
  12. HYDROCHLOROTHIAZIDE [Concomitant]
  13. MOTRIN [Concomitant]
  14. AMARYL [Concomitant]
  15. COLACE [Concomitant]
  16. DARVOCET [Concomitant]
  17. HYZAAR [Concomitant]
  18. XANAX [Concomitant]
  19. DIGOXIN [Concomitant]
  20. LOPRESSOR [Concomitant]
  21. MILK OF MAGNESIA [Concomitant]
  22. DILTIAZEM [Concomitant]
     Dates: start: 20080922

REACTIONS (18)
  - ALOPECIA [None]
  - BALANCE DISORDER [None]
  - BLOOD GLUCOSE INCREASED [None]
  - CARDIAC FAILURE CONGESTIVE [None]
  - CARDIAC OPERATION [None]
  - DEPRESSION [None]
  - DISABILITY [None]
  - DIZZINESS [None]
  - DYSSTASIA [None]
  - HYPERTENSION [None]
  - INTENTIONAL DRUG MISUSE [None]
  - MALAISE [None]
  - OEDEMA PERIPHERAL [None]
  - STENT PLACEMENT [None]
  - SUBCUTANEOUS ABSCESS [None]
  - TACHYCARDIA [None]
  - VASCULAR GRAFT [None]
  - WEIGHT DECREASED [None]
